FAERS Safety Report 22352605 (Version 1)
Quarter: 2023Q2

REPORT INFORMATION
  Report Type: Spontaneous
  Country: US (occurrence: US)
  Receive Date: 20230523
  Receipt Date: 20230523
  Transmission Date: 20230721
  Serious: No
  Sender: FDA-Public Use
  Company Number: US-BAUSCHBL-2023BNL004244

PATIENT
  Age: 95 Year
  Sex: Female

DRUGS (1)
  1. DEXAMETHASONE\NEOMYCIN\POLYMYXIN B SULFATE [Suspect]
     Active Substance: DEXAMETHASONE\NEOMYCIN\POLYMYXIN B SULFATE
     Indication: Postoperative care
     Route: 065
     Dates: start: 202305, end: 20230510

REACTIONS (6)
  - Pruritus [Unknown]
  - Swelling of eyelid [Not Recovered/Not Resolved]
  - Urticaria [Not Recovered/Not Resolved]
  - Application site swelling [Not Recovered/Not Resolved]
  - Swelling [Not Recovered/Not Resolved]
  - Skin swelling [Not Recovered/Not Resolved]

NARRATIVE: CASE EVENT DATE: 20230501
